FAERS Safety Report 6956484-8 (Version None)
Quarter: 2010Q3

REPORT INFORMATION
  Report Type: 
  Country: None (occurrence: None)
  Receive Date: 20100830
  Receipt Date: 20100824
  Transmission Date: 20110219
  Serious: Yes (Other)
  Sender: FDA-Public Use
  Company Number: US-BAYER-201019406BCC

PATIENT
  Age: 83 Year
  Sex: Male
  Weight: 102 kg

DRUGS (10)
  1. ASPIRIN [Suspect]
     Indication: CARDIAC DISORDER
     Dosage: TOTAL DAILY DOSE: 81 MG  UNIT DOSE: 81 MG
     Route: 048
     Dates: start: 19990101, end: 20090901
  2. ALKA-SELTZER EXTRA STRENGTH [Suspect]
     Indication: GASTRIC PH DECREASED
     Dosage: TOTAL DAILY DOSE: 2 DF  UNIT DOSE: 1 DF
     Route: 048
     Dates: end: 20090901
  3. GLIPIZIDE [Concomitant]
     Dosage: TOTAL DAILY DOSE: 2 DF  UNIT DOSE: 1 DF
     Route: 048
  4. AVANDIA [Concomitant]
     Dosage: HALF DOSE FORM TWICE A DAY
     Route: 065
  5. SIMVASTATIN [Concomitant]
     Route: 065
  6. LISINOPRIL [Concomitant]
     Route: 065
  7. METOPROLOL TARTRATE [Concomitant]
     Route: 065
  8. CARDORA [Concomitant]
     Route: 065
  9. EQUATE MULTI VITAMIN [Concomitant]
     Route: 065
  10. MECLIZINE [Concomitant]
     Route: 065

REACTIONS (5)
  - BLADDER CANCER [None]
  - BLOOD URINE PRESENT [None]
  - CYSTITIS [None]
  - DYSURIA [None]
  - POLLAKIURIA [None]
